FAERS Safety Report 6124859-5 (Version None)
Quarter: 2009Q1

REPORT INFORMATION
  Report Type: 
  Country: None (occurrence: None)
  Receive Date: 20090319
  Receipt Date: 20090311
  Transmission Date: 20090719
  Serious: Yes (Hospitalization)
  Sender: FDA-Public Use
  Company Number: TW-ROCHE-616250

PATIENT
  Sex: Male
  Weight: 55 kg

DRUGS (3)
  1. INTERFERON ALFA-2A [Suspect]
     Dosage: DOSE: 9(UNITE: ILLEGIBLE)
     Route: 058
     Dates: start: 20081120, end: 20090212
  2. INTERFERON ALFA-2A [Suspect]
     Route: 058
     Dates: start: 20090226
  3. BEVACIZUMAB [Suspect]
     Route: 042
     Dates: start: 20081120, end: 20090226

REACTIONS (3)
  - HAEMATOCHEZIA [None]
  - INTESTINAL OBSTRUCTION [None]
  - LOWER GASTROINTESTINAL HAEMORRHAGE [None]
